FAERS Safety Report 19072018 (Version 2)
Quarter: 2021Q2

REPORT INFORMATION
  Report Type: Spontaneous
  Country: US (occurrence: US)
  Receive Date: 20210330
  Receipt Date: 20210511
  Transmission Date: 20210717
  Serious: Yes (Death, Life-Threatening, Hospitalization, Other)
  Sender: FDA-Public Use
  Company Number: US-HIKMA PHARMACEUTICALS USA INC.-US-H14001-21-01289

PATIENT
  Age: 65 Year
  Sex: Male
  Weight: 64.5 kg

DRUGS (8)
  1. LEUCOVORIN. [Suspect]
     Active Substance: LEUCOVORIN
     Indication: BILIARY CANCER METASTATIC
     Route: 042
     Dates: start: 20210201, end: 20210215
  2. NIVOLUMAB [Suspect]
     Active Substance: NIVOLUMAB
     Indication: BILIARY CANCER METASTATIC
     Route: 042
     Dates: start: 20210201, end: 20210215
  3. NANOLIPOSOMAL IRINOTECAN [Suspect]
     Active Substance: IRINOTECAN
     Route: 042
     Dates: start: 20210301
  4. NIVOLUMAB [Suspect]
     Active Substance: NIVOLUMAB
     Route: 042
     Dates: start: 20210301
  5. FLUOROURACIL. [Suspect]
     Active Substance: FLUOROURACIL
     Indication: BILIARY CANCER METASTATIC
     Route: 042
     Dates: start: 20210201, end: 20210215
  6. FLUOROURACIL. [Suspect]
     Active Substance: FLUOROURACIL
     Route: 042
     Dates: start: 20210301
  7. LEUCOVORIN. [Suspect]
     Active Substance: LEUCOVORIN
     Route: 042
     Dates: start: 20210301
  8. NANOLIPOSOMAL IRINOTECAN [Suspect]
     Active Substance: IRINOTECAN
     Indication: BILIARY CANCER METASTATIC
     Route: 042
     Dates: start: 20210201, end: 20210215

REACTIONS (10)
  - Decreased appetite [Unknown]
  - Nausea [Unknown]
  - Metastatic neoplasm [Unknown]
  - Failure to thrive [Not Recovered/Not Resolved]
  - Vomiting [Unknown]
  - Pulmonary embolism [Unknown]
  - Cachexia [Unknown]
  - Ascites [Unknown]
  - Thrombosis [Unknown]
  - Diarrhoea [Recovering/Resolving]

NARRATIVE: CASE EVENT DATE: 20210301
